FAERS Safety Report 10221243 (Version 1)
Quarter: 2014Q2

REPORT INFORMATION
  Report Type: Spontaneous
  Country: US (occurrence: US)
  Receive Date: 20140606
  Receipt Date: 20140606
  Transmission Date: 20141212
  Serious: No
  Sender: FDA-Public Use
  Company Number: US-GLAXOSMITHKLINE-A1068077A

PATIENT
  Age: 82 Year
  Sex: Male

DRUGS (8)
  1. BREO ELLIPTA [Suspect]
     Indication: CHRONIC OBSTRUCTIVE PULMONARY DISEASE
     Dosage: 1PUFF PER DAY
     Route: 055
     Dates: start: 201401, end: 201402
  2. XOPENEX [Concomitant]
  3. SPIRIVA [Concomitant]
  4. LOSARTAN [Concomitant]
  5. PINDOLOL [Concomitant]
  6. ASPIRIN [Concomitant]
  7. PLAVIX [Concomitant]
  8. VITAMINS [Concomitant]

REACTIONS (2)
  - Respiratory tract congestion [Recovered/Resolved]
  - Cough [Unknown]
